FAERS Safety Report 9691697 (Version 2)
Quarter: 2013Q4

REPORT INFORMATION
  Report Type: Spontaneous
  Country: AU (occurrence: AU)
  Receive Date: 20131115
  Receipt Date: 20131115
  Transmission Date: 20140711
  Serious: Yes (Hospitalization)
  Sender: FDA-Public Use
  Company Number: AU-ABBVIE-13X-008-1134755-00

PATIENT
  Age: 80 Year
  Sex: Male

DRUGS (5)
  1. EPILIM [Suspect]
     Indication: PRODUCT USED FOR UNKNOWN INDICATION
  2. ATACAND PLUS [Suspect]
     Indication: PRODUCT USED FOR UNKNOWN INDICATION
     Dosage: CANDESARTAN CILEXETIL/HYDROCHLOROTHIAZIDE 16+12.5 MG
  3. ASPIRIN [Suspect]
     Indication: PRODUCT USED FOR UNKNOWN INDICATION
  4. TEGRETOL CR [Suspect]
     Indication: PRODUCT USED FOR UNKNOWN INDICATION
  5. SIMVASTATIN [Concomitant]
     Indication: PRODUCT USED FOR UNKNOWN INDICATION

REACTIONS (3)
  - Haemorrhage intracranial [Recovering/Resolving]
  - Hyponatraemia [Recovering/Resolving]
  - Dizziness [Recovering/Resolving]
